FAERS Safety Report 4910811-1 (Version None)
Quarter: 2006Q1

REPORT INFORMATION
  Report Type: 
  Country: None (occurrence: None)
  Receive Date: 20060214
  Receipt Date: 20051219
  Transmission Date: 20060701
  Serious: Yes (Death, Hospitalization)
  Sender: FDA-Public Use
  Company Number: 13218474

PATIENT
  Age: 84 Year
  Sex: Male

DRUGS (6)
  1. AVANDIA [Suspect]
     Indication: DIABETES MELLITUS NON-INSULIN-DEPENDENT
     Dosage: 2MG TWICE PER DAY
     Route: 048
     Dates: end: 20030101
  2. ACARBOSE [Suspect]
     Indication: DIABETES MELLITUS NON-INSULIN-DEPENDENT
     Dosage: 100MG TWICE PER DAY
     Route: 048
     Dates: end: 20030101
  3. DIABETA [Suspect]
     Indication: DIABETES MELLITUS NON-INSULIN-DEPENDENT
     Dosage: 10MG TWICE PER DAY
     Route: 048
     Dates: end: 20030101
  4. TEQUIN [Suspect]
     Indication: PNEUMONIA
     Dosage: 400MG PER DAY
     Route: 042
     Dates: start: 20030101, end: 20030101
  5. CEFTIN [Concomitant]
  6. AZITHROMYCIN [Concomitant]

REACTIONS (4)
  - BLOOD SODIUM DECREASED [None]
  - CONVULSION [None]
  - HYPOGLYCAEMIA [None]
  - PNEUMONIA [None]
